FAERS Safety Report 20639046 (Version 11)
Quarter: 2022Q2

REPORT INFORMATION
  Report Type: Spontaneous
  Country: US (occurrence: US)
  Receive Date: 20220326
  Receipt Date: 20220530
  Transmission Date: 20220721
  Serious: Yes (Hospitalization, Other)
  Sender: FDA-Public Use
  Company Number: US-UNITED THERAPEUTICS-UNT-2022-006394

PATIENT
  Age: 82 Year
  Sex: Female
  Weight: 80.272 kg

DRUGS (5)
  1. REMODULIN [Suspect]
     Active Substance: TREPROSTINIL
     Indication: Pulmonary arterial hypertension
     Dosage: UNK UNK, CONTINUING
     Route: 041
     Dates: start: 20180705
  2. REMODULIN [Suspect]
     Active Substance: TREPROSTINIL
     Dosage: 0.0926 ?G/KG, CONTINUING
     Route: 041
  3. REMODULIN [Suspect]
     Active Substance: TREPROSTINIL
     Dosage: UNK UNK, CONTINUING
     Route: 041
  4. BOSENTAN [Concomitant]
     Active Substance: BOSENTAN
     Indication: Product used for unknown indication
     Dosage: UNK
     Route: 065
  5. NIFEDIPINE [Concomitant]
     Active Substance: NIFEDIPINE
     Indication: Product used for unknown indication
     Dosage: UNK
     Route: 065

REACTIONS (26)
  - Vascular device infection [Unknown]
  - Sepsis [Unknown]
  - Pneumonia [Unknown]
  - Oedema [Unknown]
  - Hypotension [Unknown]
  - Urinary tract infection [Unknown]
  - Urinary tract pain [Unknown]
  - Malaise [Unknown]
  - Gait disturbance [Unknown]
  - Fatigue [Unknown]
  - Pyrexia [Unknown]
  - Fall [Recovered/Resolved with Sequelae]
  - Balance disorder [Unknown]
  - Upper limb fracture [Unknown]
  - COVID-19 [Recovered/Resolved]
  - Renal disorder [Unknown]
  - Dysuria [Unknown]
  - Oedema peripheral [Unknown]
  - Localised oedema [Unknown]
  - Dyspnoea [Unknown]
  - Dizziness [Unknown]
  - Disturbance in attention [Unknown]
  - Lip dry [Unknown]
  - Dry mouth [Unknown]
  - Diarrhoea [Unknown]
  - Device issue [Unknown]

NARRATIVE: CASE EVENT DATE: 20220322
